FAERS Safety Report 4621604-7 (Version None)
Quarter: 2005Q1

REPORT INFORMATION
  Report Type: 
  Country: None (occurrence: None)
  Receive Date: 20050328
  Receipt Date: 20050311
  Transmission Date: 20050727
  Serious: Yes (Hospitalization)
  Sender: FDA-Public Use
  Company Number: ATO-05-0082

PATIENT
  Age: 90 Year
  Sex: Male

DRUGS (10)
  1. TRISENOX [Suspect]
     Indication: MULTIPLE MYELOMA
     Dosage: (0.25 MG/KG, DAILY) IVI
     Route: 042
     Dates: start: 20041026, end: 20041111
  2. ASCORBIC ACID [Concomitant]
  3. MELPHALAN (MELPHALAN) [Concomitant]
  4. ALOXI [Concomitant]
  5. AREDIA (PAMIDRONATEI SODIUM) [Concomitant]
  6. KYTRIL [Concomitant]
  7. ARANESP [Concomitant]
  8. NEUPOGEN [Concomitant]
  9. DECADRON [Concomitant]
  10. PREDNISONE [Concomitant]

REACTIONS (6)
  - ABDOMINAL MASS [None]
  - ABDOMINAL PAIN [None]
  - HERPES ZOSTER [None]
  - NEUTROPENIA [None]
  - PYREXIA [None]
  - WHITE BLOOD CELL COUNT DECREASED [None]
